FAERS Safety Report 6513952-0 (Version None)
Quarter: 2009Q4

REPORT INFORMATION
  Report Type: 
  Country: None (occurrence: None)
  Receive Date: 20091223
  Receipt Date: 20091217
  Transmission Date: 20100525
  Serious: Yes (Other)
  Sender: FDA-Public Use
  Company Number: AU-RANBAXY-2009RR-29838

PATIENT
  Age: 52 Year
  Sex: Female

DRUGS (2)
  1. CLINDAMYCIN [Suspect]
     Indication: BRAIN ABSCESS
     Dosage: 450 MG, TID
  2. AMOXICILLIN [Concomitant]
     Indication: BRAIN ABSCESS

REACTIONS (1)
  - HEPATOTOXICITY [None]
